FAERS Safety Report 23457588 (Version 2)
Quarter: 2024Q1

REPORT INFORMATION
  Report Type: Spontaneous
  Country: US (occurrence: US)
  Receive Date: 20240130
  Receipt Date: 20240314
  Transmission Date: 20240410
  Serious: Yes (Death)
  Sender: FDA-Public Use
  Company Number: US-PFIZER INC-PV202300147117

PATIENT
  Age: 60 Year
  Sex: Male
  Weight: 115.9 kg

DRUGS (1)
  1. BOSULIF [Suspect]
     Active Substance: BOSUTINIB MONOHYDRATE
     Indication: Chronic myeloid leukaemia
     Dosage: 300 MG, 1X/DAY
     Route: 048
     Dates: start: 202203, end: 20240118

REACTIONS (1)
  - Death [Fatal]

NARRATIVE: CASE EVENT DATE: 20240118
